FAERS Safety Report 4828083-5 (Version None)
Quarter: 2005Q4

REPORT INFORMATION
  Report Type: 
  Country: None (occurrence: None)
  Receive Date: 20051110
  Receipt Date: 20051108
  Transmission Date: 20060501
  Serious: Yes (Other)
  Sender: FDA-Public Use
  Company Number: 200513741GDS

PATIENT
  Age: 66 Year
  Sex: Female

DRUGS (3)
  1. AVELOX [Suspect]
     Indication: CHRONIC OBSTRUCTIVE PULMONARY DISEASE
     Dosage: 400 MG, QD, ORAL
     Route: 048
     Dates: start: 20041101
  2. HYZAAR [Concomitant]
  3. HELEX [Concomitant]

REACTIONS (2)
  - ASTHENIA [None]
  - FALL [None]
